FAERS Safety Report 20019259 (Version 10)
Quarter: 2023Q1

REPORT INFORMATION
  Report Type: Spontaneous
  Country: US (occurrence: US)
  Receive Date: 20211101
  Receipt Date: 20230302
  Transmission Date: 20230418
  Serious: No
  Sender: FDA-Public Use
  Company Number: US-GLAXOSMITHKLINE-US2021AMR224670

PATIENT
  Sex: Female
  Weight: 95.7 kg

DRUGS (3)
  1. ZEJULA [Suspect]
     Active Substance: NIRAPARIB
     Indication: Ovarian cancer
     Dosage: 200 MG, QD
     Dates: start: 20210904, end: 20211103
  2. ZEJULA [Suspect]
     Active Substance: NIRAPARIB
     Dosage: 200 MG, QD
     Dates: start: 202111
  3. ZEJULA [Suspect]
     Active Substance: NIRAPARIB
     Dosage: 100 MG, QD
     Route: 048

REACTIONS (5)
  - Dyspnoea [Recovering/Resolving]
  - Haemoglobin decreased [Recovered/Resolved]
  - Tumour marker increased [Recovered/Resolved]
  - Fatigue [Not Recovered/Not Resolved]
  - White coat hypertension [Unknown]
